FAERS Safety Report 5071343-6 (Version None)
Quarter: 2006Q3

REPORT INFORMATION
  Report Type: 
  Country: None (occurrence: None)
  Receive Date: 20060804
  Receipt Date: 20051223
  Transmission Date: 20061208
  Serious: No
  Sender: FDA-Public Use
  Company Number: US-AMGEN-US162794

PATIENT
  Sex: Male

DRUGS (8)
  1. ARANESP [Suspect]
     Indication: DIALYSIS
     Route: 058
     Dates: start: 20050401, end: 20051219
  2. NIFEREX [Concomitant]
  3. LOPRESSOR [Concomitant]
  4. PHOSLO [Concomitant]
  5. FLOMAX [Concomitant]
  6. NEPHRO-VITE [Concomitant]
  7. ASPIRIN [Concomitant]
  8. ASTELIN [Concomitant]

REACTIONS (3)
  - INFECTION [None]
  - IRON DEFICIENCY [None]
  - THERAPEUTIC RESPONSE DECREASED [None]
